FAERS Safety Report 6259981-6 (Version None)
Quarter: 2009Q3

REPORT INFORMATION
  Report Type: 
  Country: None (occurrence: None)
  Receive Date: 20090708
  Receipt Date: 20090701
  Transmission Date: 20100115
  Serious: Yes (Other)
  Sender: FDA-Public Use
  Company Number: FR-PFIZER INC-2009235122

PATIENT
  Age: 71 Year

DRUGS (8)
  1. TAHOR [Suspect]
     Dosage: 80 MG, UNK
     Dates: start: 20070515, end: 20080101
  2. PLAVIX [Interacting]
     Dosage: UNK
     Dates: start: 20050101
  3. MOPRAL [Interacting]
     Dosage: UNK
     Dates: start: 20050101, end: 20080101
  4. KARDEGIC [Concomitant]
     Dosage: UNK
     Dates: start: 20050101
  5. LOVENOX [Concomitant]
     Dosage: UNK
     Dates: start: 20080125
  6. KREDEX [Concomitant]
     Dosage: UNK
     Dates: start: 20080125
  7. TRIATEC [Concomitant]
     Dosage: UNK
     Dates: start: 20050201
  8. OMACOR [Concomitant]
     Dosage: UNK
     Dates: start: 20080125

REACTIONS (2)
  - DRUG INTERACTION [None]
  - MYOCARDIAL INFARCTION [None]
